FAERS Safety Report 23670244 (Version 3)
Quarter: 2025Q4

REPORT INFORMATION
  Report Type: Spontaneous
  Country: EU (occurrence: EU)
  Receive Date: 20240325
  Receipt Date: 20251127
  Transmission Date: 20260118
  Serious: Yes (Hospitalization, Other)
  Sender: RANBAXY
  Company Number: EU-SUN PHARMACEUTICAL INDUSTRIES LTD-2022R1-349060

PATIENT
  Age: 74 Year
  Sex: Male

DRUGS (17)
  1. PEMETREXED [Suspect]
     Active Substance: PEMETREXED
     Indication: Non-small cell lung cancer
     Dosage: 500 MILLIGRAM/SQ. METER, 1DOSE/21DAYS
     Route: 042
  2. CARBOPLATIN [Suspect]
     Active Substance: CARBOPLATIN
     Indication: Non-small cell lung cancer
     Dosage: UNK UNK, 1DOSE/21DAYS
     Route: 042
  3. CARBOPLATIN [Suspect]
     Active Substance: CARBOPLATIN
     Dosage: UNK (AUC5 EVERY 3 WEEKS)
     Route: 042
  4. PEMBROLIZUMAB [Suspect]
     Active Substance: PEMBROLIZUMAB
     Indication: Non-small cell lung cancer
     Dosage: 200 MILLIGRAM, 1DOSE/21DAYS
     Route: 042
  5. LEVOLEUCOVORIN [Concomitant]
     Active Substance: LEVOLEUCOVORIN
     Indication: Vitamin supplementation
     Dosage: 200 MILLIGRAM
     Route: 042
  6. LEVOLEUCOVORIN [Concomitant]
     Active Substance: LEVOLEUCOVORIN
     Indication: Lung adenocarcinoma
     Dosage: UNK (175 MILLIGRAM)
     Route: 042
  7. GLYCOPYRROLATE [Concomitant]
     Active Substance: GLYCOPYRROLATE
     Indication: Chronic obstructive pulmonary disease
     Dosage: UNK
     Route: 065
  8. ASPIRIN [Concomitant]
     Active Substance: ASPIRIN
     Indication: Product used for unknown indication
     Dosage: UNK (100 MG)
     Route: 048
  9. CALCIUM [Concomitant]
     Active Substance: CALCIUM
     Indication: Supplementation therapy
     Dosage: UNK
     Route: 048
  10. PERINDOPRIL [Concomitant]
     Active Substance: PERINDOPRIL
     Indication: Product used for unknown indication
     Dosage: UNK (2.5 MG)
     Route: 048
  11. ACETAMINOPHEN [Concomitant]
     Active Substance: ACETAMINOPHEN
     Indication: Pain
     Dosage: 1000 MILLIGRAM, TID
     Route: 048
  12. PANTOPRAZOLE [Concomitant]
     Active Substance: PANTOPRAZOLE
     Indication: Gastrooesophageal reflux disease
     Dosage: UNK (40 MG)
     Route: 048
  13. PRAVASTATIN [Concomitant]
     Active Substance: PRAVASTATIN
     Indication: Prophylaxis
     Dosage: UNK (40 MG)
     Route: 048
  14. ALPRAZOLAM [Concomitant]
     Active Substance: ALPRAZOLAM
     Indication: Anxiety
     Dosage: UNK (0.25 MG)
     Route: 048
  15. PHLOROGLUCINOL [Concomitant]
     Active Substance: PHLOROGLUCINOL
     Indication: Gastrointestinal pain
     Dosage: UNK (80 MG)
     Route: 048
  16. CHOLECALCIFEROL [Concomitant]
     Active Substance: CHOLECALCIFEROL
     Indication: Supplementation therapy
     Dosage: UNK
     Route: 048
  17. BECLOMETHASONE [Concomitant]
     Active Substance: BECLOMETHASONE
     Indication: Chronic obstructive pulmonary disease
     Dosage: UNK
     Route: 065

REACTIONS (4)
  - Febrile bone marrow aplasia [Recovered/Resolved]
  - Neutropenia [Recovered/Resolved]
  - Drug eruption [Recovered/Resolved]
  - Pyrexia [Recovered/Resolved]
